FAERS Safety Report 14846256 (Version 1)
Quarter: 2018Q2

REPORT INFORMATION
  Report Type: Spontaneous
  Country: US (occurrence: US)
  Receive Date: 20180504
  Receipt Date: 20180504
  Transmission Date: 20180711
  Serious: No
  Sender: FDA-Public Use
  Company Number: US-JNJFOC-20180421736

PATIENT
  Age: 70 Year
  Sex: Female
  Weight: 86.18 kg

DRUGS (1)
  1. NIZORAL A-D [Suspect]
     Active Substance: KETOCONAZOLE
     Indication: ALOPECIA
     Dosage: 1%
     Route: 065
     Dates: start: 20180409

REACTIONS (1)
  - Drug administration error [Unknown]
